FAERS Safety Report 16955928 (Version 2)
Quarter: 2019Q4

REPORT INFORMATION
  Report Type: Report from Study
  Country: CA (occurrence: CA)
  Receive Date: 20191024
  Receipt Date: 20191121
  Transmission Date: 20200122
  Serious: Yes (Other)
  Sender: FDA-Public Use
  Company Number: CA-TAKEDA-2019TUS058696

PATIENT
  Age: 81 Year
  Sex: Male

DRUGS (5)
  1. SALOFALK                           /00000301/ [Concomitant]
     Active Substance: AMINOSALICYLIC ACID
     Dosage: UNK
     Dates: start: 20150422
  2. VEDOLIZUMAB [Suspect]
     Active Substance: VEDOLIZUMAB
     Indication: COLITIS ULCERATIVE
     Dosage: 300 MILLIGRAM
     Route: 042
     Dates: start: 20190502
  3. PREDNISONE. [Concomitant]
     Active Substance: PREDNISONE
     Dosage: UNK
     Dates: start: 20190417
  4. VEDOLIZUMAB [Suspect]
     Active Substance: VEDOLIZUMAB
     Dosage: 300 MILLIGRAM
     Route: 042
  5. PENTASA [Concomitant]
     Active Substance: MESALAMINE
     Dosage: UNK
     Dates: start: 20100422

REACTIONS (2)
  - Bladder neoplasm [Unknown]
  - Urinary bladder haemorrhage [Unknown]
